FAERS Safety Report 5470161-4 (Version None)
Quarter: 2007Q3

REPORT INFORMATION
  Report Type: 
  Country: None (occurrence: None)
  Receive Date: 20070927
  Receipt Date: 20070917
  Transmission Date: 20080115
  Serious: Yes (Hospitalization)
  Sender: FDA-Public Use
  Company Number: GB-PFIZER INC-2007077648

PATIENT
  Sex: Male

DRUGS (1)
  1. PHENYTOIN [Suspect]

REACTIONS (1)
  - THERAPEUTIC AGENT TOXICITY [None]
